FAERS Safety Report 9517964 (Version 3)
Quarter: 2013Q4

REPORT INFORMATION
  Report Type: Spontaneous
  Country: US (occurrence: US)
  Receive Date: 20130912
  Receipt Date: 20131227
  Transmission Date: 20140711
  Serious: No
  Sender: FDA-Public Use
  Company Number: US-PFIZER INC-2013258087

PATIENT
  Age: 79 Year
  Sex: Male

DRUGS (1)
  1. SUTENT [Suspect]
     Indication: MALIGNANT URINARY TRACT NEOPLASM
     Dosage: 50 MG, CYCLIC (DAILY 14 DAYS ON , 7 DAYS OFF)
     Route: 048
     Dates: start: 20120816

REACTIONS (2)
  - Diarrhoea [Recovering/Resolving]
  - Hyperaesthesia [Unknown]
